FAERS Safety Report 17850949 (Version 1)
Quarter: 2020Q2

REPORT INFORMATION
  Report Type: Spontaneous
  Country: CN (occurrence: CN)
  Receive Date: 20200602
  Receipt Date: 20200602
  Transmission Date: 20200714
  Serious: Yes (Hospitalization, Other)
  Sender: FDA-Public Use
  Company Number: CN-BAYER-2020-102404

PATIENT
  Sex: Male
  Weight: 65 kg

DRUGS (4)
  1. NIFEDIPINE. [Suspect]
     Active Substance: NIFEDIPINE
     Indication: SECONDARY HYPERTENSION
     Dosage: 1 DF, QD
     Route: 048
     Dates: end: 201912
  2. STIVARGA [Suspect]
     Active Substance: REGORAFENIB
     Indication: COLON CANCER
     Dosage: 120 MG, QD
     Route: 048
     Dates: start: 20191019, end: 20200325
  3. NIFEDIPINE. [Suspect]
     Active Substance: NIFEDIPINE
     Indication: SECONDARY HYPERTENSION
     Dosage: 1 DF, BID
     Route: 048
     Dates: start: 201912
  4. INSULIN ASPART [Concomitant]
     Active Substance: INSULIN ASPART

REACTIONS (4)
  - Protein urine present [Recovering/Resolving]
  - Myocardial necrosis marker increased [Recovering/Resolving]
  - Blood pressure increased [Recovering/Resolving]
  - Off label use [None]

NARRATIVE: CASE EVENT DATE: 20191019
